FAERS Safety Report 7562506-6 (Version None)
Quarter: 2011Q2

REPORT INFORMATION
  Report Type: 
  Country: None (occurrence: None)
  Receive Date: 20110525
  Receipt Date: 20110325
  Transmission Date: 20111010
  Serious: No
  Sender: FDA-Public Use
  Company Number: 326197

PATIENT
  Age: 43 Year
  Sex: Female
  Weight: 97.5 kg

DRUGS (4)
  1. GLUMETZA [Concomitant]
  2. VICTOZA [Suspect]
     Dosage: 1.2 MG, QD, SUBCUTANEOUS
     Route: 058
  3. METFORMIN HCL [Concomitant]
  4. VICTOZA [Suspect]
     Indication: INSULIN RESISTANT DIABETES
     Dosage: SUBCUTANEOUS
     Route: 058

REACTIONS (13)
  - ASPARTATE AMINOTRANSFERASE INCREASED [None]
  - BLOOD GLUCOSE DECREASED [None]
  - ACNE [None]
  - DEVICE MALFUNCTION [None]
  - NAUSEA [None]
  - ENERGY INCREASED [None]
  - DRUG DOSE OMISSION [None]
  - OROPHARYNGEAL PAIN [None]
  - PHARYNGEAL ERYTHEMA [None]
  - BLOOD GLUCOSE INCREASED [None]
  - ALANINE AMINOTRANSFERASE INCREASED [None]
  - RASH [None]
  - DECREASED APPETITE [None]
